FAERS Safety Report 5206229-7 (Version None)
Quarter: 2007Q1

REPORT INFORMATION
  Report Type: 
  Country: None (occurrence: None)
  Receive Date: 20070109
  Receipt Date: 20061225
  Transmission Date: 20070707
  Serious: No
  Sender: FDA-Public Use
  Company Number: 20073401

PATIENT
  Sex: Male

DRUGS (1)
  1. LIORESAL [Suspect]
     Indication: MUSCLE SPASTICITY
     Dosage: MCG, DAILY, INTRATHECAL
     Route: 037

REACTIONS (2)
  - BACK PAIN [None]
  - PARAESTHESIA [None]
